FAERS Safety Report 25622010 (Version 2)
Quarter: 2025Q3

REPORT INFORMATION
  Report Type: Spontaneous
  Country: EU (occurrence: EU)
  Receive Date: 20250730
  Receipt Date: 20250805
  Transmission Date: 20251021
  Serious: Yes (Other)
  Sender: AMGEN
  Company Number: EU-AMGEN-POLSP2025145379

PATIENT

DRUGS (2)
  1. NPLATE [Suspect]
     Active Substance: ROMIPLOSTIM
     Indication: Immune thrombocytopenia
     Route: 040
     Dates: start: 20240923
  2. PREDNISONE [Suspect]
     Active Substance: PREDNISONE
     Indication: Immune thrombocytopenia
     Route: 065
     Dates: start: 2024

REACTIONS (10)
  - HIV infection [Unknown]
  - Laryngitis [Unknown]
  - Pharyngitis [Unknown]
  - Vitamin D deficiency [Unknown]
  - Iron deficiency anaemia [Unknown]
  - Anaemia folate deficiency [Unknown]
  - Giardiasis [Unknown]
  - Gastritis [Unknown]
  - Hiatus hernia [Unknown]
  - Acne [Unknown]

NARRATIVE: CASE EVENT DATE: 20240701
